FAERS Safety Report 8212144-7 (Version None)
Quarter: 2012Q1

REPORT INFORMATION
  Report Type: 
  Country: None (occurrence: None)
  Receive Date: 20120315
  Receipt Date: 20120312
  Transmission Date: 20120608
  Serious: Yes (Death)
  Sender: FDA-Public Use
  Company Number: PHHY2011CA75043

PATIENT
  Sex: Female

DRUGS (3)
  1. DOXORUBICIN HYDROCHLORIDE [Concomitant]
  2. AFINITOR [Suspect]
     Indication: RENAL CELL CARCINOMA
     Dosage: 10 MG, UNK
     Route: 048
     Dates: start: 20110411
  3. VOTRIENT [Concomitant]

REACTIONS (5)
  - FATIGUE [None]
  - NAUSEA [None]
  - DIZZINESS [None]
  - DEATH [None]
  - STOMATITIS [None]
